FAERS Safety Report 8906579 (Version 1)
Quarter: 2012Q4

REPORT INFORMATION
  Report Type: 
  Country: US (occurrence: US)
  Receive Date: 20121114
  Receipt Date: 20121114
  Transmission Date: 20130627
  Serious: No
  Sender: FDA-Public Use
  Company Number: US-009507513-1211USA003872

PATIENT
  Sex: Female

DRUGS (1)
  1. PEGINTRON [Suspect]
     Dosage: 1 standard dose of 1
     Route: 058
     Dates: start: 201205

REACTIONS (2)
  - Medical device complication [Unknown]
  - Drug dose omission [Unknown]
